FAERS Safety Report 7174518-5 (Version None)
Quarter: 2010Q4

REPORT INFORMATION
  Report Type: 
  Country: None (occurrence: None)
  Receive Date: 20101219
  Receipt Date: 20100330
  Transmission Date: 20110411
  Serious: No
  Sender: FDA-Public Use
  Company Number: US-AMGEN-KDL402824

PATIENT

DRUGS (6)
  1. ENBREL [Suspect]
     Indication: PRODUCT USED FOR UNKNOWN INDICATION
     Dosage: 50 MG, QWK
     Route: 058
  2. ALPRAZOLAM [Concomitant]
     Dosage: .25 MG, UNK
  3. TRAMADOL HYDROCHLORIDE [Concomitant]
     Dosage: 50 MG, UNK
  4. METHOTREXATE [Concomitant]
     Dosage: 2.5 MG, UNK
  5. BENAZEPRIL HYDROCHLORIDE [Concomitant]
     Dosage: 6.25 MG, UNK
  6. BENAZEPRIL HYDROCHLORIDE [Concomitant]
     Dosage: 10 MG, UNK

REACTIONS (2)
  - FATIGUE [None]
  - PYREXIA [None]
